FAERS Safety Report 7507588-2 (Version None)
Quarter: 2011Q2

REPORT INFORMATION
  Report Type: 
  Country: None (occurrence: None)
  Receive Date: 20110526
  Receipt Date: 20100412
  Transmission Date: 20111010
  Serious: Yes (Hospitalization, Other)
  Sender: FDA-Public Use
  Company Number: US-MYLANLABS-2010S1006356

PATIENT
  Sex: Female

DRUGS (8)
  1. ESTRADIOL [Suspect]
     Indication: OSTEOPOROSIS
  2. ESTRADIOL [Suspect]
     Indication: CARDIOVASCULAR EVENT PROPHYLAXIS
  3. PROVERA [Suspect]
     Indication: CARDIOVASCULAR EVENT PROPHYLAXIS
  4. PROVERA [Suspect]
     Indication: OSTEOPOROSIS
  5. ESTRACE [Suspect]
     Indication: CARDIOVASCULAR EVENT PROPHYLAXIS
  6. MEDROXYPROGESTERONE [Suspect]
     Indication: CARDIOVASCULAR EVENT PROPHYLAXIS
  7. ESTRACE [Suspect]
     Indication: OSTEOPOROSIS
  8. MEDROXYPROGESTERONE [Suspect]
     Indication: OSTEOPOROSIS

REACTIONS (1)
  - BREAST CANCER [None]
